FAERS Safety Report 20975408 (Version 2)
Quarter: 2023Q1

REPORT INFORMATION
  Report Type: Report from Study
  Country: JP (occurrence: JP)
  Receive Date: 20220617
  Receipt Date: 20230124
  Transmission Date: 20230417
  Serious: Yes (Hospitalization)
  Sender: FDA-Public Use
  Company Number: JP-GILEAD-2022-0585857

PATIENT
  Sex: Male

DRUGS (2)
  1. EMTRICITABINE\TENOFOVIR [Suspect]
     Active Substance: EMTRICITABINE\TENOFOVIR
     Indication: HIV infection
     Dosage: 1 DOSAGE FORM, QD
     Route: 048
     Dates: start: 20200602
  2. PIFELTRO [Suspect]
     Active Substance: DORAVIRINE
     Indication: HIV infection
     Dosage: 1 DOSAGE FORM
     Route: 065
     Dates: start: 20200602

REACTIONS (2)
  - Anogenital warts [Recovered/Resolved]
  - Primary syphilis [Recovered/Resolved]

NARRATIVE: CASE EVENT DATE: 20200901
